FAERS Safety Report 9814983 (Version 2)
Quarter: 2015Q4

REPORT INFORMATION
  Report Type: Report from Study
  Country: US (occurrence: US)
  Receive Date: 20140114
  Receipt Date: 20151126
  Transmission Date: 20160305
  Serious: Yes (Death)
  Sender: FDA-Public Use
  Company Number: US-ROCHE-1332597

PATIENT
  Age: 53 Year
  Sex: Male

DRUGS (15)
  1. AVASTIN [Suspect]
     Active Substance: BEVACIZUMAB
     Indication: COLON CANCER
     Route: 041
     Dates: start: 20120126, end: 20120209
  2. ZOFRAN [Concomitant]
     Active Substance: ONDANSETRON HYDROCHLORIDE
     Route: 042
     Dates: start: 20120126
  3. LEUCOVORIN. [Concomitant]
     Active Substance: LEUCOVORIN
     Indication: COLON CANCER METASTATIC
     Route: 042
     Dates: start: 20120126, end: 20120209
  4. 5-FLUOROURACIL [Concomitant]
     Active Substance: FLUOROURACIL
     Dosage: C1
     Route: 042
     Dates: start: 20120126, end: 20120209
  5. NORMAL SALINE [Concomitant]
     Active Substance: SODIUM CHLORIDE
  6. HEPARIN [Concomitant]
     Active Substance: HEPARIN SODIUM
     Dosage: 10 K, C1
     Route: 042
  7. DECADRON [Concomitant]
     Active Substance: DEXAMETHASONE
     Route: 042
     Dates: start: 20120126
  8. LEUCOVORIN. [Concomitant]
     Active Substance: LEUCOVORIN
     Route: 041
     Dates: start: 20120223
  9. 5-FLUOROURACIL [Concomitant]
     Active Substance: FLUOROURACIL
     Indication: COLON CANCER METASTATIC
     Route: 042
     Dates: start: 20120126, end: 20120209
  10. 5-FLUOROURACIL [Concomitant]
     Active Substance: FLUOROURACIL
     Route: 042
     Dates: start: 20120223
  11. HEPARIN [Concomitant]
     Active Substance: HEPARIN SODIUM
     Dosage: 1 K
     Route: 042
  12. AVASTIN [Suspect]
     Active Substance: BEVACIZUMAB
     Route: 041
     Dates: start: 20120223
  13. OXALIPLATIN. [Concomitant]
     Active Substance: OXALIPLATIN
     Indication: COLON CANCER METASTATIC
     Route: 042
     Dates: start: 20120126
  14. 5-FLUOROURACIL [Concomitant]
     Active Substance: FLUOROURACIL
     Dosage: C1
     Route: 042
     Dates: start: 20120223
  15. CALCIUM FOLINATE [Concomitant]
     Active Substance: LEUCOVORIN CALCIUM
     Route: 042
     Dates: start: 20120126

REACTIONS (5)
  - Death [Fatal]
  - Constipation [Unknown]
  - Diarrhoea [Unknown]
  - Fatigue [Unknown]
  - Pain [Unknown]

NARRATIVE: CASE EVENT DATE: 20120126
